FAERS Safety Report 6551023-8 (Version None)
Quarter: 2010Q1

REPORT INFORMATION
  Report Type: 
  Country: None (occurrence: None)
  Receive Date: 20100122
  Receipt Date: 20100122
  Transmission Date: 20100710
  Serious: Yes (Hospitalization)
  Sender: FDA-Public Use
  Company Number: None

PATIENT
  Age: 43 Year
  Sex: Female
  Weight: 63.5036 kg

DRUGS (2)
  1. TYLENOL (CAPLET) [Suspect]
     Indication: MALAISE
     Dates: start: 20090916, end: 20090916
  2. TYLENOL (CAPLET) [Suspect]
     Indication: PYREXIA
     Dates: start: 20090916, end: 20090916

REACTIONS (3)
  - DIZZINESS [None]
  - NAUSEA [None]
  - PRODUCT QUALITY ISSUE [None]
